FAERS Safety Report 11257281 (Version 1)
Quarter: 2015Q3

REPORT INFORMATION
  Report Type: Spontaneous
  Country: PT (occurrence: PT)
  Receive Date: 20150709
  Receipt Date: 20150709
  Transmission Date: 20151125
  Serious: Yes (Hospitalization)
  Sender: FDA-Public Use
  Company Number: PT-MYLANLABS-2015M1022248

PATIENT

DRUGS (1)
  1. AMIODARONA 200 MG [Suspect]
     Active Substance: AMIODARONE
     Indication: ATRIAL FIBRILLATION
     Dosage: 200 MG, QD

REACTIONS (6)
  - Dyspnoea [Unknown]
  - Interstitial lung disease [Recovering/Resolving]
  - Productive cough [Unknown]
  - Organising pneumonia [Recovering/Resolving]
  - Pneumonia [Recovered/Resolved]
  - Malaise [Unknown]
